FAERS Safety Report 9521859 (Version 1)
Quarter: 2013Q3

REPORT INFORMATION
  Report Type: Spontaneous
  Country: DE (occurrence: DE)
  Receive Date: 20130913
  Receipt Date: 20130913
  Transmission Date: 20140515
  Serious: Yes (Other)
  Sender: FDA-Public Use
  Company Number: DE-UCBSA-097368

PATIENT
  Age: 51 Year
  Sex: Female
  Weight: 75 kg

DRUGS (5)
  1. KEPPRA [Suspect]
     Dosage: TOTAL AMOUNT: 1250 MG
     Route: 048
  2. QUILONUM RETARD [Suspect]
     Dosage: DOSE: 2 TABLETS/DAILY
     Route: 048
  3. NITRENDIPINE [Suspect]
     Dosage: DOSE: 1 TABLET/ DAILY
     Route: 048
  4. SOLIAN [Suspect]
     Dosage: TOTAL AMOUNT: 300 MG
     Route: 048
  5. LEPONEX [Suspect]
     Dosage: TOTAL AMOUNT: 400 MG
     Route: 048

REACTIONS (4)
  - Accidental exposure to product [Unknown]
  - Somnolence [Unknown]
  - Hypotonia [Unknown]
  - Asthenia [Unknown]
